FAERS Safety Report 9257541 (Version 1)
Quarter: 2013Q1

REPORT INFORMATION
  Report Type: Spontaneous
  Country: US (occurrence: None)
  Receive Date: 20121212
  Receipt Date: 20121212
  Transmission Date: 20140127
  Serious: No
  Sender: FDA-Public Use
  Company Number: 1208USA006097

PATIENT
  Age: 60 Year
  Sex: Male

DRUGS (5)
  1. VICTRELIS [Suspect]
     Indication: HEPATITIS C
     Route: 048
  2. PEGINTERFERON ALFA-2B (PEGINTERFERON ALFA-2B) [Suspect]
  3. RIBAVIRIN (RIBAVIRIN) [Suspect]
     Indication: HEPATITIS C
  4. OXYCODONE (OXYCODONE) [Concomitant]
  5. COCAINE (COCAINE) [Concomitant]

REACTIONS (4)
  - Aphagia [None]
  - Inappropriate schedule of drug administration [None]
  - Nausea [None]
  - Dysgeusia [None]
